FAERS Safety Report 9018318 (Version 1)
Quarter: 2013Q1

REPORT INFORMATION
  Report Type: Spontaneous
  Country: US (occurrence: None)
  Receive Date: 20130111
  Receipt Date: 20130111
  Transmission Date: 20140127
  Serious: Yes (Hospitalization)
  Sender: FDA-Public Use
  Company Number: None

PATIENT
  Age: 72 Year
  Sex: Male
  Weight: 189.1 kg

DRUGS (2)
  1. FENTANYL [Suspect]
     Dosage: TOP
     Route: 061
     Dates: end: 20121106
  2. HYDROMORPHONE [Suspect]
     Dosage: 2 MG PRN.

REACTIONS (1)
  - Mental status changes [None]
